FAERS Safety Report 14983487 (Version 1)
Quarter: 2018Q2

REPORT INFORMATION
  Report Type: Spontaneous
  Country: PT (occurrence: PT)
  Receive Date: 20180607
  Receipt Date: 20180607
  Transmission Date: 20180711
  Serious: Yes (Other)
  Sender: FDA-Public Use
  Company Number: PHHY2018PT013144

PATIENT
  Age: 47 Year
  Sex: Male

DRUGS (1)
  1. OLANZAPINE. [Suspect]
     Active Substance: OLANZAPINE
     Indication: DEPRESSION
     Dosage: UNK
     Route: 065

REACTIONS (6)
  - Xanthoma [Unknown]
  - Metabolic disorder [Unknown]
  - Papule [Unknown]
  - Concomitant disease aggravated [Unknown]
  - Skin discolouration [Unknown]
  - Skin lesion [Unknown]
